FAERS Safety Report 17654535 (Version 6)
Quarter: 2020Q3

REPORT INFORMATION
  Report Type: Report from Study
  Country: DE (occurrence: DE)
  Receive Date: 20200410
  Receipt Date: 20200921
  Transmission Date: 20201102
  Serious: Yes (Life-Threatening, Hospitalization)
  Sender: FDA-Public Use
  Company Number: DE-ROCHE-2488426

PATIENT
  Age: 49 Year
  Sex: Male
  Weight: 120 kg

DRUGS (15)
  1. VITAMIN B2 [Concomitant]
     Active Substance: RIBOFLAVIN
     Dates: start: 20200312
  2. METHYLPREDNISOLONE. [Concomitant]
     Active Substance: METHYLPREDNISOLONE
     Indication: PREMEDICATION
     Dosage: DATES OF TREATMENT: 21/AUG/2012, 23/JAN/2013, 06/FEB/2013, 08/JUL/2013, 22/JUL/2013, 23/DEC/2013, 06
     Dates: start: 20120807
  3. AERIUS [Concomitant]
     Indication: PREMEDICATION
     Dosage: TREATMENT DATES: 07/AUG/2012, 20/AUG/2012, 21/AUG/2012, 22/JAN/2013, 23/JAN/2013, 05/FEB/2013, 06/FE
     Dates: start: 20120806
  4. RANITIDIN [Concomitant]
     Active Substance: RANITIDINE HYDROCHLORIDE
     Indication: PREMEDICATION
     Dosage: DATES OF TREATMENT: 06/AUG/2012, 07/AUG/2012, 20/AUG/2012, 21/AUG/2012, 22/JAN/2013, 23/JAN/2013, 05
     Dates: start: 20120806
  5. IBUPROFEN. [Concomitant]
     Active Substance: IBUPROFEN
  6. RAMIPRIL. [Concomitant]
     Active Substance: RAMIPRIL
     Indication: HYPERTENSION
     Dates: start: 20191118
  7. SATIVEX [Concomitant]
     Active Substance: NABIXIMOLS
     Dates: start: 20140613
  8. BLINDED OCRELIZUMAB [Suspect]
     Active Substance: OCRELIZUMAB
     Indication: PRIMARY PROGRESSIVE MULTIPLE SCLEROSIS
     Dosage: TWO IV INFUSIONS OF 300 MG IN EACH TREATMENT CYCLE OF DOUBLE BLIND TREATMENT PERIOD; TWO IV INFUSION
     Route: 042
     Dates: start: 20120807, end: 20151111
  9. OCRELIZUMAB. [Suspect]
     Active Substance: OCRELIZUMAB
     Indication: PRIMARY PROGRESSIVE MULTIPLE SCLEROSIS
     Dosage: SUBSEQUENT OPEN LABEL DOSES WERE RECEIVED ON: 26/NOV/2015, 28/APR/2016, 12/MAY/2016, 11/OCT/2016 AND
     Route: 042
     Dates: start: 20151112
  10. AMLODIPIN [Concomitant]
     Active Substance: AMLODIPINE BESYLATE
     Indication: HYPERTENSION
     Dates: start: 20191118
  11. DEKRISTOLMIN [Concomitant]
     Active Substance: CHOLECALCIFEROL
     Indication: VITAMIN D DEFICIENCY
     Dates: start: 20170627, end: 20200102
  12. OCRELIZUMAB. [Suspect]
     Active Substance: OCRELIZUMAB
     Dosage: SUBSEQUENT DOSES OF 520 ML ON 14/SEP/2017, 05/MAR/2018, 21/AUG/2018, 31/JAN/2019 AND 16/JUL/2019.
     Route: 042
     Dates: start: 20170330
  13. METFORMIN [Concomitant]
     Active Substance: METFORMIN HYDROCHLORIDE
     Dates: start: 201804
  14. PANTOZOL [Concomitant]
     Active Substance: PANTOPRAZOLE SODIUM
     Dates: start: 20191116
  15. FAMOTIDINE. [Concomitant]
     Active Substance: FAMOTIDINE
     Dates: start: 20200106

REACTIONS (2)
  - Pulmonary embolism [Recovered/Resolved]
  - Erysipelas [Recovered/Resolved]

NARRATIVE: CASE EVENT DATE: 20191116
